FAERS Safety Report 7283780-X (Version None)
Quarter: 2011Q1

REPORT INFORMATION
  Report Type: 
  Country: None (occurrence: None)
  Receive Date: 20110209
  Receipt Date: 20110203
  Transmission Date: 20110831
  Serious: Yes (Other)
  Sender: FDA-Public Use
  Company Number: FR-MERCK-1102FRA00033

PATIENT
  Age: 35 Year
  Sex: Male

DRUGS (3)
  1. IFOSFAMIDE [Suspect]
     Route: 042
     Dates: start: 20091007
  2. EMEND [Suspect]
     Indication: PROPHYLAXIS OF NAUSEA AND VOMITING
     Route: 048
     Dates: start: 20101007, end: 20101007
  3. EMEND [Suspect]
     Route: 048
     Dates: start: 20101008, end: 20101009

REACTIONS (1)
  - ENCEPHALOPATHY [None]
